FAERS Safety Report 6805400-8 (Version None)
Quarter: 2010Q2

REPORT INFORMATION
  Report Type: 
  Country: None (occurrence: None)
  Receive Date: 20100628
  Receipt Date: 20071112
  Transmission Date: 20101027
  Serious: No
  Sender: FDA-Public Use
  Company Number: US-PFIZER INC-2007095278

PATIENT
  Sex: Female
  Weight: 70.31 kg

DRUGS (3)
  1. CADUET [Suspect]
     Indication: HYPERTENSION
     Dosage: 5/20 MG
     Dates: start: 20071108
  2. CADUET [Suspect]
     Indication: BLOOD CHOLESTEROL INCREASED
  3. IRON [Concomitant]

REACTIONS (2)
  - EXPIRED DRUG ADMINISTERED [None]
  - PALPITATIONS [None]
